FAERS Safety Report 9067454 (Version 1)
Quarter: 2013Q1

REPORT INFORMATION
  Report Type: Spontaneous
  Country: US (occurrence: US)
  Receive Date: 20130214
  Receipt Date: 20130214
  Transmission Date: 20140127
  Serious: Yes (Other)
  Sender: FDA-Public Use
  Company Number: US-AMGEN-USASP2013010311

PATIENT
  Age: 64 Year
  Sex: Female
  Weight: 66.21 kg

DRUGS (12)
  1. ENBREL [Suspect]
     Indication: PRODUCT USED FOR UNKNOWN INDICATION
     Dosage: 50 MG, QWK
     Route: 058
  2. PLAVIX [Concomitant]
     Dosage: 300 MG, UNK
  3. ATENOLOL [Concomitant]
     Dosage: 50 MG, UNK
  4. PRAVASTATIN [Concomitant]
     Dosage: 20 MG, UNK
  5. PENICILLIN VK [Concomitant]
     Dosage: 250 MG, UNK
  6. VITAMIN B12                        /00056201/ [Concomitant]
     Dosage: 1000 MUG, UNK
  7. ZINC [Concomitant]
     Dosage: 50 MG, UNK
  8. BIOTIN [Concomitant]
     Dosage: 5000 UNK, UNK
  9. LUTEIN                             /01638501/ [Concomitant]
     Dosage: 10 MG, UNK
  10. CITRACAL D FORT [Concomitant]
     Dosage: UNK
  11. SYNTHROID [Concomitant]
     Dosage: 100 MUG, UNK
  12. ASACOL [Concomitant]
     Dosage: 400 MG, UNK

REACTIONS (2)
  - Neoplasm malignant [Unknown]
  - Cardiac pacemaker insertion [Unknown]
